FAERS Safety Report 8570516-5 (Version None)
Quarter: 2012Q3

REPORT INFORMATION
  Report Type: 
  Country: None (occurrence: None)
  Receive Date: 20120803
  Receipt Date: 20120606
  Transmission Date: 20120928
  Serious: No
  Sender: FDA-Public Use
  Company Number: US-ASTRAZENECA-2012SE38007

PATIENT
  Age: 50 Year
  Sex: Female
  Weight: 73.9 kg

DRUGS (4)
  1. LISINOPRIL [Suspect]
     Route: 048
     Dates: start: 20120510
  2. BRILINTA [Suspect]
     Indication: CATHETERISATION CARDIAC
     Route: 048
     Dates: start: 20120509
  3. ASPIRIN [Concomitant]
  4. CRESTOR [Suspect]
     Route: 048
     Dates: start: 20120510

REACTIONS (3)
  - DIZZINESS [None]
  - CONTUSION [None]
  - SOMNOLENCE [None]
